FAERS Safety Report 17191629 (Version 2)
Quarter: 2023Q1

REPORT INFORMATION
  Report Type: Spontaneous
  Country: CA (occurrence: CA)
  Receive Date: 20191223
  Receipt Date: 20230120
  Transmission Date: 20230417
  Serious: Yes (Death)
  Sender: FDA-Public Use
  Company Number: CA-PFIZER INC-2019547613

PATIENT

DRUGS (14)
  1. HYDROMORPHONE HYDROCHLORIDE [Suspect]
     Active Substance: HYDROMORPHONE HYDROCHLORIDE
     Indication: Foetal exposure during pregnancy
     Dosage: UNK
     Route: 064
  2. LORAZEPAM [Suspect]
     Active Substance: LORAZEPAM
     Indication: Hyperemesis gravidarum
     Dosage: UNK
     Route: 064
  3. LORAZEPAM [Suspect]
     Active Substance: LORAZEPAM
     Indication: Foetal exposure during pregnancy
  4. ONDANSETRON [Suspect]
     Active Substance: ONDANSETRON
     Indication: Hyperemesis gravidarum
     Dosage: UNK
     Route: 064
  5. ONDANSETRON [Suspect]
     Active Substance: ONDANSETRON
     Indication: Foetal exposure during pregnancy
  6. THIAMINE HYDROCHLORIDE [Suspect]
     Active Substance: THIAMINE HYDROCHLORIDE
     Indication: Hyperemesis gravidarum
     Dosage: UNK
     Route: 064
  7. THIAMINE HYDROCHLORIDE [Suspect]
     Active Substance: THIAMINE HYDROCHLORIDE
     Indication: Foetal exposure during pregnancy
  8. DIPHENHYDRAMINE [Suspect]
     Active Substance: DIPHENHYDRAMINE
     Indication: Hyperemesis gravidarum
     Dosage: 200 MG
     Route: 064
  9. DIPHENHYDRAMINE [Suspect]
     Active Substance: DIPHENHYDRAMINE
     Indication: Foetal exposure during pregnancy
  10. HYDROXYZINE [Suspect]
     Active Substance: HYDROXYZINE HYDROCHLORIDE
     Indication: Hyperemesis gravidarum
     Dosage: 100 MG
     Route: 064
  11. HYDROXYZINE [Suspect]
     Active Substance: HYDROXYZINE HYDROCHLORIDE
     Indication: Foetal exposure during pregnancy
  12. METOCLOPRAMIDE [Suspect]
     Active Substance: METOCLOPRAMIDE
     Indication: Hyperemesis gravidarum
     Dosage: UNK
     Route: 064
  13. METOCLOPRAMIDE [Suspect]
     Active Substance: METOCLOPRAMIDE
     Indication: Foetal exposure during pregnancy
  14. TACROLIMUS [Suspect]
     Active Substance: TACROLIMUS
     Indication: Foetal exposure during pregnancy
     Dosage: UNK
     Route: 064

REACTIONS (2)
  - Maternal exposure during pregnancy [Fatal]
  - Premature baby [Fatal]
